FAERS Safety Report 18592354 (Version 2)
Quarter: 2021Q2

REPORT INFORMATION
  Report Type: Spontaneous
  Country: US (occurrence: US)
  Receive Date: 20201208
  Receipt Date: 20210609
  Transmission Date: 20210717
  Serious: No
  Sender: FDA-Public Use
  Company Number: US-MYLANLABS-2020M1100838

PATIENT
  Sex: Male
  Weight: 86 kg

DRUGS (1)
  1. EPINEPHRINE INJECTION USP AUTO?INJECTOR [Suspect]
     Active Substance: EPINEPHRINE
     Indication: FOOD ALLERGY
     Dosage: AS NEEDED
     Route: 030

REACTIONS (2)
  - Product quality issue [None]
  - Liquid product physical issue [None]
